FAERS Safety Report 8430807-5 (Version None)
Quarter: 2012Q2

REPORT INFORMATION
  Report Type: 
  Country: None (occurrence: None)
  Receive Date: 20120612
  Receipt Date: 20120604
  Transmission Date: 20120825
  Serious: Yes (Death, Hospitalization)
  Sender: FDA-Public Use
  Company Number: US-ACTELION-A-US2012-65533

PATIENT

DRUGS (1)
  1. TRACLEER [Suspect]
     Indication: PULMONARY ARTERIAL HYPERTENSION
     Dosage: UNK
     Route: 048
     Dates: start: 20080806, end: 20120523

REACTIONS (6)
  - DEATH [None]
  - TRANSIENT ISCHAEMIC ATTACK [None]
  - APHONIA [None]
  - PARALYSIS [None]
  - OEDEMA PERIPHERAL [None]
  - PRURITUS [None]
